FAERS Safety Report 8533746-4 (Version None)
Quarter: 2012Q3

REPORT INFORMATION
  Report Type: 
  Country: None (occurrence: None)
  Receive Date: 20120724
  Receipt Date: 20120710
  Transmission Date: 20120928
  Serious: Yes (Life-Threatening)
  Sender: FDA-Public Use
  Company Number: IT-MYLANLABS-2012S1014049

PATIENT
  Age: 29 Year
  Sex: Male

DRUGS (2)
  1. FORMISTIN [Concomitant]
     Indication: RHINITIS ALLERGIC
     Dates: start: 20090101
  2. CETIRIZINE HCL [Suspect]
     Indication: RHINITIS ALLERGIC
     Route: 048
     Dates: start: 20120615, end: 20120615

REACTIONS (1)
  - LARYNGEAL OEDEMA [None]
